FAERS Safety Report 12603096 (Version 1)
Quarter: 2016Q3

REPORT INFORMATION
  Report Type: Spontaneous
  Country: IT (occurrence: IT)
  Receive Date: 20160728
  Receipt Date: 20160728
  Transmission Date: 20161109
  Serious: Yes (Hospitalization)
  Sender: FDA-Public Use
  Company Number: IT-KADMON PHARMACEUTICALS, LLC-KAD201607-002818

PATIENT
  Age: 46 Year
  Sex: Male

DRUGS (7)
  1. RIBAVIRIN. [Suspect]
     Active Substance: RIBAVIRIN
     Indication: HEPATITIS C
     Dosage: CAPSULE, HARD
     Route: 048
     Dates: start: 20160504, end: 20160511
  2. ALDACTONE [Concomitant]
     Active Substance: SPIRONOLACTONE
     Dosage: CAPSULE, HARD
     Route: 048
  3. ATENOLOL. [Concomitant]
     Active Substance: ATENOLOL
     Dosage: TABLET
     Route: 048
  4. ADVAGRAF [Suspect]
     Active Substance: TACROLIMUS
     Indication: PROPHYLAXIS AGAINST TRANSPLANT REJECTION
     Dosage: MODIFIED-RELEASE CAPSULE, HARD
     Route: 048
     Dates: end: 20160511
  5. LASIX [Concomitant]
     Active Substance: FUROSEMIDE
     Route: 048
  6. EXVIERA [Suspect]
     Active Substance: DASABUVIR
     Indication: HEPATITIS C
     Dosage: COATED TABLET
     Route: 048
     Dates: start: 20160504, end: 20160511
  7. VIEKIRAX [Suspect]
     Active Substance: OMBITASVIR\PARITAPREVIR\RITONAVIR
     Indication: HEPATITIS C
     Dosage: COATED TABLET
     Route: 048
     Dates: start: 20160504, end: 20160511

REACTIONS (2)
  - Acute kidney injury [Recovered/Resolved]
  - Urine output decreased [Recovered/Resolved]

NARRATIVE: CASE EVENT DATE: 20160509
